FAERS Safety Report 5297343-9 (Version None)
Quarter: 2007Q2

REPORT INFORMATION
  Report Type: 
  Country: None (occurrence: None)
  Receive Date: 20070409
  Receipt Date: 20070330
  Transmission Date: 20071010
  Serious: Yes (Death, Hospitalization)
  Sender: FDA-Public Use
  Company Number: 2007SP002056

PATIENT
  Age: 76 Year
  Sex: Male

DRUGS (15)
  1. TEMOZOLOMIDE (S-P) (TEMOZOLOMIDE) [Suspect]
     Indication: GLIOMA
     Dosage: SEE IMAGE
     Dates: start: 20061206, end: 20061210
  2. TEMOZOLOMIDE (S-P) (TEMOZOLOMIDE) [Suspect]
     Indication: GLIOMA
     Dosage: SEE IMAGE
     Dates: start: 20070118, end: 20070122
  3. ZOPHREN [Concomitant]
  4. MEDROL [Concomitant]
  5. SOLU-MEDROL [Concomitant]
  6. CIPROFLOXACIN HCL [Concomitant]
  7. FLAGYL [Concomitant]
  8. DIANTALVIC [Concomitant]
  9. NEURONTIN [Concomitant]
  10. DIFFU K [Concomitant]
  11. IMOVANE [Concomitant]
  12. MEDROL [Concomitant]
  13. MOVICOL [Concomitant]
  14. NEXIUM [Concomitant]
  15. DAFALGAN [Concomitant]

REACTIONS (19)
  - BALANCE DISORDER [None]
  - CARDIAC FLUTTER [None]
  - CONFUSIONAL STATE [None]
  - CULTURE STOOL POSITIVE [None]
  - CULTURE URINE POSITIVE [None]
  - DEHYDRATION [None]
  - EPILEPSY [None]
  - FALL [None]
  - GLIOMA [None]
  - GRAND MAL CONVULSION [None]
  - HEART RATE INCREASED [None]
  - MALAISE [None]
  - MALIGNANT NEOPLASM PROGRESSION [None]
  - MUSCULAR WEAKNESS [None]
  - RENAL IMPAIRMENT [None]
  - STAPHYLOCOCCAL SEPSIS [None]
  - TREMOR [None]
  - URINARY INCONTINENCE [None]
  - VISUAL DISTURBANCE [None]
